FAERS Safety Report 9521600 (Version 1)
Quarter: 2013Q3

REPORT INFORMATION
  Report Type: Spontaneous
  Country: US (occurrence: None)
  Receive Date: 20130911
  Receipt Date: 20130911
  Transmission Date: 20140515
  Serious: No
  Sender: FDA-Public Use
  Company Number: AEUSA201300045

PATIENT
  Age: 78 Year
  Sex: Male

DRUGS (5)
  1. GAMMAKED [Suspect]
     Indication: CHRONIC INFLAMMATORY DEMYELINATING POLYRADICULONEUROPATHY
     Route: 042
     Dates: start: 20121108, end: 20121206
  2. SYNTHROID [Concomitant]
  3. GABAPENTIN [Concomitant]
  4. HYDROCHLOROTHIAZIDE [Concomitant]
  5. XANAX [Concomitant]

REACTIONS (2)
  - Rash [None]
  - Blister [None]
